FAERS Safety Report 10056933 (Version 3)
Quarter: 2014Q2

REPORT INFORMATION
  Report Type: Spontaneous
  Country: US (occurrence: US)
  Receive Date: 20140403
  Receipt Date: 20140501
  Transmission Date: 20141212
  Serious: Yes (Life-Threatening, Hospitalization, Disabling, Other)
  Sender: FDA-Public Use
  Company Number: US-009507513-1403USA014163

PATIENT
  Age: 46 Year
  Sex: Male
  Weight: 76.19 kg

DRUGS (5)
  1. ISENTRESS [Suspect]
     Indication: HIV TEST POSITIVE
     Route: 048
  2. TIVICAY [Suspect]
     Dosage: UNK, QD
  3. SULFADIAZINE [Suspect]
  4. TRUVADA [Concomitant]
  5. DARUNAVIR [Concomitant]

REACTIONS (1)
  - Stevens-Johnson syndrome [Recovering/Resolving]
